FAERS Safety Report 21208157 (Version 1)
Quarter: 2022Q3

REPORT INFORMATION
  Report Type: Spontaneous
  Country: US (occurrence: US)
  Receive Date: 20220812
  Receipt Date: 20220812
  Transmission Date: 20221027
  Serious: Yes (Death, Life-Threatening, Other)
  Sender: FDA-Public Use
  Company Number: US-drreddys-LIT/USA/22/0153291

PATIENT
  Age: 65 Year
  Sex: Female

DRUGS (3)
  1. AZACITIDINE [Suspect]
     Active Substance: AZACITIDINE
     Indication: Acute myeloid leukaemia
  2. NIVOLUMAB [Suspect]
     Active Substance: NIVOLUMAB
     Indication: Acute myeloid leukaemia
  3. NIVOLUMAB [Suspect]
     Active Substance: NIVOLUMAB
     Dosage: PATIENT RERESTARTED

REACTIONS (3)
  - Acute myeloid leukaemia [Fatal]
  - Drug ineffective [Unknown]
  - Pneumonitis [Recovered/Resolved]
